FAERS Safety Report 8838189 (Version 2)
Quarter: 2012Q4

REPORT INFORMATION
  Report Type: 
  Country: IT (occurrence: IT)
  Receive Date: 20121012
  Receipt Date: 20121120
  Transmission Date: 20130627
  Serious: Yes (Hospitalization)
  Sender: FDA-Public Use
  Company Number: IT-BRISTOL-MYERS SQUIBB COMPANY-17013939

PATIENT
  Age: 79 Year
  Sex: Female

DRUGS (1)
  1. COUMADIN TABS 5 MG [Suspect]
     Indication: EMBOLIC STROKE
     Dosage: Interrupted on 02Oct2012.
     Dates: start: 20090527

REACTIONS (1)
  - Peripheral embolism [Recovered/Resolved]
